FAERS Safety Report 23084755 (Version 1)
Quarter: 2023Q4

REPORT INFORMATION
  Report Type: Spontaneous
  Country: FR (occurrence: FR)
  Receive Date: 20231019
  Receipt Date: 20231019
  Transmission Date: 20240110
  Serious: Yes (Congenital Anomaly)
  Sender: FDA-Public Use
  Company Number: FR-AFSSAPS-TS2023000839

PATIENT
  Sex: Female
  Weight: 3.5 kg

DRUGS (7)
  1. SERTRALINE [Suspect]
     Active Substance: SERTRALINE HYDROCHLORIDE
     Indication: Anxiety disorder
     Dosage: 100 MILLIGRAM, DAILY
     Route: 064
     Dates: start: 2020, end: 20211225
  2. TRIMEPRAZINE [Suspect]
     Active Substance: TRIMEPRAZINE
     Indication: Behaviour disorder
     Dosage: 35 MILLIGRAM, DAILY
     Route: 064
     Dates: start: 2021
  3. METFORMIN PAMOATE [Suspect]
     Active Substance: METFORMIN PAMOATE
     Indication: Diabetes mellitus
     Dosage: 3 DOSAGE FORM, DAILY
     Route: 064
     Dates: start: 2021, end: 20210809
  4. ATARAX [Suspect]
     Active Substance: HYDROXYZINE HYDROCHLORIDE
     Indication: Anxiety disorder
     Dosage: UNK
     Route: 064
     Dates: start: 2020
  5. REPAGLINIDE [Suspect]
     Active Substance: REPAGLINIDE
     Indication: Diabetes mellitus
     Dosage: 4 MILLIGRAM, DAILY
     Route: 064
     Dates: start: 2021, end: 20210809
  6. ENALAPRIL [Suspect]
     Active Substance: ENALAPRIL
     Indication: Hypertension
     Dosage: 5 MILLIGRAM, DAILY
     Route: 064
     Dates: start: 2021, end: 20210625
  7. LANTUS [Concomitant]
     Active Substance: INSULIN GLARGINE
     Indication: Diabetes mellitus
     Dosage: 16 INTERNATIONAL UNIT, DAILY
     Route: 064
     Dates: start: 2021

REACTIONS (3)
  - Maternal exposure during pregnancy [Recovered/Resolved]
  - Renal aplasia [Not Recovered/Not Resolved]
  - Congenital uterine anomaly [Not Recovered/Not Resolved]

NARRATIVE: CASE EVENT DATE: 20211225
